FAERS Safety Report 21190052 (Version 1)
Quarter: 2022Q3

REPORT INFORMATION
  Report Type: Spontaneous
  Country: US (occurrence: None)
  Receive Date: 20220809
  Receipt Date: 20220809
  Transmission Date: 20221027
  Serious: Yes (Hospitalization)
  Sender: FDA-Public Use
  Company Number: None

PATIENT
  Age: 39 Year
  Sex: Male
  Weight: 104.3 kg

DRUGS (4)
  1. METHOTREXATE [Suspect]
     Active Substance: METHOTREXATE
     Dates: end: 20220801
  2. ONCASPAR [Suspect]
     Active Substance: PEGASPARGASE
     Dosage: OTHER QUANTITY : 7500 IU;?
     Dates: end: 20220802
  3. RITUXIMAB [Suspect]
     Active Substance: RITUXIMAB
     Dates: end: 20220722
  4. VINCRISTINE SULFATE [Suspect]
     Active Substance: VINCRISTINE SULFATE
     Dates: end: 20220711

REACTIONS (13)
  - Nausea [None]
  - Vomiting [None]
  - Diarrhoea [None]
  - Abdominal pain [None]
  - Chills [None]
  - Fatigue [None]
  - Tachycardia [None]
  - Sepsis [None]
  - Acute kidney injury [None]
  - Gastroenteritis [None]
  - Mucosal inflammation [None]
  - Hepatitis viral [None]
  - Hyperbilirubinaemia [None]

NARRATIVE: CASE EVENT DATE: 20220803
